FAERS Safety Report 7302156-X (Version None)
Quarter: 2011Q1

REPORT INFORMATION
  Report Type: 
  Country: None (occurrence: None)
  Receive Date: 20110207
  Receipt Date: 20110131
  Transmission Date: 20110831
  Serious: Yes (Hospitalization, Other)
  Sender: FDA-Public Use
  Company Number: 2010SP010746

PATIENT
  Sex: Female
  Weight: 81.6475 kg

DRUGS (1)
  1. NUVARING [Suspect]
     Indication: CONTRACEPTION
     Dates: start: 20080101, end: 20080501

REACTIONS (9)
  - PNEUMONIA [None]
  - THROMBOPHLEBITIS [None]
  - PULMONARY EMBOLISM [None]
  - MENSTRUAL DISORDER [None]
  - DEEP VEIN THROMBOSIS [None]
  - MULTIPLE INJURIES [None]
  - PELVIC PAIN [None]
  - ASTHMA [None]
  - OVARIAN CYST [None]
